FAERS Safety Report 7292905-1 (Version None)
Quarter: 2011Q1

REPORT INFORMATION
  Report Type: 
  Country: None (occurrence: None)
  Receive Date: 20110209
  Receipt Date: 20110209
  Transmission Date: 20110831
  Serious: Yes (Other)
  Sender: FDA-Public Use
  Company Number: None

PATIENT
  Sex: Female
  Weight: 74.6621 kg

DRUGS (1)
  1. VENLAFAXINE [Suspect]
     Indication: DEPRESSION
     Dosage: 75MG QAM PO
     Route: 048
     Dates: start: 20101004, end: 20110204

REACTIONS (2)
  - HEADACHE [None]
  - PRODUCT FORMULATION ISSUE [None]
